FAERS Safety Report 7555918-8 (Version None)
Quarter: 2011Q2

REPORT INFORMATION
  Report Type: 
  Country: None (occurrence: None)
  Receive Date: 20110618
  Receipt Date: 20110606
  Transmission Date: 20111010
  Serious: Yes (Hospitalization, Other)
  Sender: FDA-Public Use
  Company Number: US-ELI_LILLY_AND_COMPANY-US201106002588

PATIENT
  Sex: Male

DRUGS (22)
  1. FOLIC ACID [Concomitant]
  2. POTASSIUM CHLORIDE [Concomitant]
  3. SIMVASTATIN [Concomitant]
  4. MORPHINE [Concomitant]
  5. MULTI-VITAMIN [Concomitant]
  6. FORTEO [Suspect]
     Indication: OSTEOPOROSIS
     Dosage: 20 UG, QD
     Dates: start: 20100801
  7. FLONASE [Concomitant]
  8. NOVOLOG [Concomitant]
  9. VITAMIN D [Concomitant]
  10. NITROGLYCERIN [Concomitant]
     Indication: CHEST PAIN
  11. ASPIRIN [Concomitant]
  12. FERROUS SULFATE TAB [Concomitant]
  13. PACERONE [Concomitant]
  14. LEVOTHYROXINE SODIUM [Concomitant]
  15. PROAIR HFA [Concomitant]
     Indication: ASTHMA
  16. BUMEX [Concomitant]
  17. OXYCODONE HCL [Concomitant]
  18. CALCIUM CARBONATE [Concomitant]
  19. FORTEO [Suspect]
     Dosage: 20 UG, QD
  20. OMEPRAZOLE [Concomitant]
  21. VITAMIN B [Concomitant]
  22. CARVEDILOL [Concomitant]

REACTIONS (2)
  - FEMUR FRACTURE [None]
  - FALL [None]
